FAERS Safety Report 19047934 (Version 1)
Quarter: 2021Q1

REPORT INFORMATION
  Report Type: Spontaneous
  Country: AE (occurrence: AE)
  Receive Date: 20210324
  Receipt Date: 20210324
  Transmission Date: 20210420
  Serious: Yes (Hospitalization, Other)
  Sender: FDA-Public Use
  Company Number: AE-IPCA LABORATORIES LIMITED-IPC-2021-AE-000647

PATIENT

DRUGS (1)
  1. METOCLOPRAMIDE. [Suspect]
     Active Substance: METOCLOPRAMIDE
     Indication: VOMITING
     Dosage: 10 MILLIGRAM, SINGLE
     Route: 042

REACTIONS (1)
  - Atrial fibrillation [Recovered/Resolved]
